FAERS Safety Report 10162396 (Version 3)
Quarter: 2014Q2

REPORT INFORMATION
  Report Type: Report from Study
  Country: US (occurrence: US)
  Receive Date: 20140509
  Receipt Date: 20140613
  Transmission Date: 20141212
  Serious: Yes (Other)
  Sender: FDA-Public Use
  Company Number: US-MYLANLABS-2014S1010246

PATIENT
  Age: 20 Year
  Sex: Female
  Weight: 63.05 kg

DRUGS (3)
  1. AMNESTEEM CAPSULES [Suspect]
     Dates: start: 20140331, end: 20140422
  2. TRINESSA [Concomitant]
     Dates: start: 20140216, end: 20140422
  3. IRON [Concomitant]
     Dates: start: 20140102, end: 20140422

REACTIONS (5)
  - Exposure during pregnancy [Not Recovered/Not Resolved]
  - Constipation [Not Recovered/Not Resolved]
  - Dizziness [Not Recovered/Not Resolved]
  - Streptococcus test positive [Not Recovered/Not Resolved]
  - Foetal cardiac disorder [Not Recovered/Not Resolved]
